FAERS Safety Report 10476141 (Version 1)
Quarter: 2014Q3

REPORT INFORMATION
  Report Type: Spontaneous
  Country: US (occurrence: US)
  Receive Date: 20140925
  Receipt Date: 20140925
  Transmission Date: 20150326
  Serious: Yes (Hospitalization)
  Sender: FDA-Public Use
  Company Number: US-ROXANE LABORATORIES, INC.-2014-RO-01438RO

PATIENT
  Age: 21 Year
  Sex: Female

DRUGS (4)
  1. LITHIUM CARBONATE. [Suspect]
     Active Substance: LITHIUM CARBONATE
     Indication: AFFECTIVE DISORDER
     Dosage: 900 MG
     Route: 048
  2. HALOPERIDOL DECANOATE. [Suspect]
     Active Substance: HALOPERIDOL DECANOATE
     Indication: AFFECTIVE DISORDER
     Dosage: 100 MG
     Route: 065
  3. DIPHENHYDRAMINE [Concomitant]
     Active Substance: DIPHENHYDRAMINE
     Indication: AFFECTIVE DISORDER
     Dosage: 100 MG
     Route: 065
  4. HALOPERIDOL. [Suspect]
     Active Substance: HALOPERIDOL
     Indication: AFFECTIVE DISORDER
     Dosage: 20 MG
     Route: 048

REACTIONS (2)
  - Neurotoxicity [Recovered/Resolved]
  - Suicidal ideation [Recovered/Resolved]
